FAERS Safety Report 17699284 (Version 2)
Quarter: 2020Q4

REPORT INFORMATION
  Report Type: Spontaneous
  Country: US (occurrence: US)
  Receive Date: 20200423
  Receipt Date: 20201002
  Transmission Date: 20210113
  Serious: Yes (Other)
  Sender: FDA-Public Use
  Company Number: US-GILEAD-2020-0460260

PATIENT
  Age: 45 Year
  Sex: Female

DRUGS (2)
  1. VIREAD [Suspect]
     Active Substance: TENOFOVIR DISOPROXIL FUMARATE
     Indication: HIV INFECTION
     Dosage: UNK
     Route: 048
     Dates: start: 2009, end: 2016
  2. BIKTARVY [Concomitant]
     Active Substance: BICTEGRAVIR SODIUM\EMTRICITABINE\TENOFOVIR ALAFENAMIDE FUMARATE

REACTIONS (23)
  - Renal atrophy [Not Recovered/Not Resolved]
  - Kidney transplant rejection [Not Recovered/Not Resolved]
  - Avulsion fracture [Not Recovered/Not Resolved]
  - Osteoarthritis [Not Recovered/Not Resolved]
  - End stage renal disease [Not Recovered/Not Resolved]
  - Fracture [Unknown]
  - Glycosuria [Not Recovered/Not Resolved]
  - Proteinuria [Not Recovered/Not Resolved]
  - Acute kidney injury [Not Recovered/Not Resolved]
  - Chronic kidney disease [Unknown]
  - Economic problem [Not Recovered/Not Resolved]
  - Nephrolithiasis [Not Recovered/Not Resolved]
  - Renal transplant [Not Recovered/Not Resolved]
  - Tooth loss [Unknown]
  - Haematuria [Not Recovered/Not Resolved]
  - Chronic kidney disease-mineral and bone disorder [Not Recovered/Not Resolved]
  - Bone density decreased [Unknown]
  - Spinal osteoarthritis [Not Recovered/Not Resolved]
  - Osteonecrosis [Unknown]
  - Renal failure [Not Recovered/Not Resolved]
  - Bone loss [Unknown]
  - Pain [Not Recovered/Not Resolved]
  - Emotional distress [Not Recovered/Not Resolved]

NARRATIVE: CASE EVENT DATE: 20100619
